FAERS Safety Report 13264150 (Version 1)
Quarter: 2017Q1

REPORT INFORMATION
  Report Type: Report from Study
  Country: DE (occurrence: DE)
  Receive Date: 20170223
  Receipt Date: 20170223
  Transmission Date: 20170428
  Serious: Yes (Hospitalization, Other)
  Sender: FDA-Public Use
  Company Number: DE-PFIZER INC-2016242250

PATIENT
  Age: 86 Year
  Sex: Male
  Weight: 69 kg

DRUGS (8)
  1. PHENPROCOUMON [Suspect]
     Active Substance: PHENPROCOUMON
     Dosage: 3 MG, UNK
     Route: 048
     Dates: start: 20160414, end: 20160415
  2. PHENPROCOUMON [Suspect]
     Active Substance: PHENPROCOUMON
     Dosage: 1.5 MG, UNK
     Route: 048
     Dates: start: 20160423, end: 20160425
  3. PHENPROCOUMON [Suspect]
     Active Substance: PHENPROCOUMON
     Dosage: 3 MG, UNK
     Route: 048
     Dates: start: 20160426, end: 20160426
  4. PHENPROCOUMON [Suspect]
     Active Substance: PHENPROCOUMON
     Dosage: 1.5 MG, UNK
     Route: 048
     Dates: start: 20160427, end: 20160428
  5. DALTEPARIN SODIUM [Suspect]
     Active Substance: DALTEPARIN SODIUM
     Dosage: 1 DF, UNK
     Route: 058
     Dates: start: 20160412, end: 20160414
  6. APIXABAN [Suspect]
     Active Substance: APIXABAN
     Dosage: UNK
     Route: 065
  7. PHENPROCOUMON [Suspect]
     Active Substance: PHENPROCOUMON
     Indication: ATRIAL FIBRILLATION
     Dosage: 9 MG, UNK
     Route: 048
     Dates: start: 20160412, end: 20160412
  8. PHENPROCOUMON [Suspect]
     Active Substance: PHENPROCOUMON
     Dosage: 6 MG, UNK
     Route: 048
     Dates: start: 20160413, end: 20160413

REACTIONS (3)
  - Hypertensive crisis [Recovered/Resolved]
  - Overdose [Recovered/Resolved]
  - Pneumonia [Recovered/Resolved]

NARRATIVE: CASE EVENT DATE: 20160416
